FAERS Safety Report 9648641 (Version 2)
Quarter: 2013Q4

REPORT INFORMATION
  Report Type: Spontaneous
  Country: US (occurrence: US)
  Receive Date: 20131028
  Receipt Date: 20131202
  Transmission Date: 20140711
  Serious: No
  Sender: FDA-Public Use
  Company Number: US-PFIZER INC-2013307646

PATIENT
  Age: 68 Year
  Sex: Female
  Weight: 57.6 kg

DRUGS (5)
  1. LYRICA [Suspect]
     Indication: PAIN
     Dosage: UNK
     Dates: start: 2013, end: 2013
  2. VALTREX [Concomitant]
     Dosage: 500 MG, DAILY
  3. SERTRALINE [Concomitant]
     Dosage: 100 MG, DAILY
  4. SYNTHROID [Concomitant]
     Dosage: 0.5 DAILY
  5. PRAVASTATIN [Concomitant]
     Dosage: 40 MG, DAILY

REACTIONS (6)
  - Alopecia [Not Recovered/Not Resolved]
  - Oedema peripheral [Unknown]
  - Joint swelling [Unknown]
  - Pain in extremity [Unknown]
  - Arthralgia [Unknown]
  - Weight increased [Unknown]
